FAERS Safety Report 10048612 (Version 1)
Quarter: 2014Q1

REPORT INFORMATION
  Report Type: Spontaneous
  Country: US (occurrence: None)
  Receive Date: 20140327
  Receipt Date: 20140327
  Transmission Date: 20141002
  Serious: Yes (Other)
  Sender: FDA-Public Use
  Company Number: BB14-089-AE

PATIENT
  Age: 48 Year
  Sex: Female

DRUGS (3)
  1. NIZATIDINE [Suspect]
     Route: 048
  2. SINGULAIR [Concomitant]
  3. XYZAL [Concomitant]

REACTIONS (3)
  - Aphonia [None]
  - Throat tightness [None]
  - Product substitution issue [None]
